FAERS Safety Report 6318283-X (Version None)
Quarter: 2009Q3

REPORT INFORMATION
  Report Type: 
  Country: None (occurrence: None)
  Receive Date: 20090821
  Receipt Date: 20090812
  Transmission Date: 20100115
  Serious: Yes (Hospitalization)
  Sender: FDA-Public Use
  Company Number: BR-AVENTIS-200810712GDDC

PATIENT
  Age: 47 Year
  Sex: Female
  Weight: 59 kg

DRUGS (15)
  1. LANTUS [Suspect]
     Route: 058
  2. LANTUS [Suspect]
     Route: 058
     Dates: end: 20080101
  3. LANTUS [Suspect]
     Route: 058
     Dates: start: 20080101
  4. LANTUS [Suspect]
     Route: 058
  5. NATURETTI [Suspect]
     Indication: GASTROINTESTINAL DISORDER
     Dosage: DOSE: 1-2
     Route: 048
     Dates: start: 20070701
  6. NATURETTI [Suspect]
     Dosage: DOSE QUANTITY: 5
     Route: 048
  7. LASIX [Concomitant]
     Route: 048
  8. CEBRALAT [Concomitant]
     Route: 048
     Dates: start: 20000101
  9. DIVELOL [Concomitant]
     Route: 048
     Dates: start: 20030101
  10. SUSTRATE [Concomitant]
     Route: 048
     Dates: start: 19980101
  11. ESTAZOLAM [Concomitant]
     Dosage: DOSE QUANTITY: 1
     Route: 048
     Dates: start: 20070101
  12. LIPITOR [Concomitant]
     Route: 048
     Dates: start: 19980101
  13. HUMALOG [Concomitant]
     Route: 058
     Dates: start: 20030101
  14. UNKNOWN DRUG [Concomitant]
     Indication: PANIC DISORDER
     Route: 048
     Dates: start: 20070701
  15. OSCAL                              /00108001/ [Concomitant]
     Dosage: FREQUENCY: BEFORE MEALS
     Route: 048
     Dates: start: 20070701

REACTIONS (5)
  - CONDITION AGGRAVATED [None]
  - DIARRHOEA [None]
  - HYPERGLYCAEMIA [None]
  - MEDICATION ERROR [None]
  - RENAL FAILURE [None]
